FAERS Safety Report 4840063-2 (Version None)
Quarter: 2005Q4

REPORT INFORMATION
  Report Type: 
  Country: None (occurrence: None)
  Receive Date: 20051129
  Receipt Date: 20040702
  Transmission Date: 20060501
  Serious: Yes (Hospitalization, Other)
  Sender: FDA-Public Use
  Company Number: PHNU2004DE02364

PATIENT
  Age: 64 Year
  Sex: Male
  Weight: 78 kg

DRUGS (3)
  1. ZOMETA [Suspect]
     Indication: OSTEOPOROSIS
     Dosage: 4 MG EVERY 6 MONTHS
     Route: 042
     Dates: start: 20010101, end: 20031101
  2. ZOMETA [Suspect]
     Dates: start: 20050501, end: 20050501
  3. AREDIA [Suspect]
     Indication: OSTEOPOROSIS
     Dosage: EVERY 6 MONTHS
     Route: 042
     Dates: start: 19990101, end: 20010101

REACTIONS (6)
  - ARRHYTHMIA [None]
  - ATRIAL FIBRILLATION [None]
  - ATRIAL FLUTTER [None]
  - ELECTROCARDIOGRAM ABNORMAL [None]
  - IDIOPATHIC THROMBOCYTOPENIC PURPURA [None]
  - THROMBOCYTOPENIA [None]
